FAERS Safety Report 5656642-9 (Version None)
Quarter: 2008Q1

REPORT INFORMATION
  Report Type: 
  Country: None (occurrence: None)
  Receive Date: 20080310
  Receipt Date: 20080205
  Transmission Date: 20080703
  Serious: No
  Sender: FDA-Public Use
  Company Number: US-BAYER-200813389NA

PATIENT
  Age: 51 Year
  Sex: Female
  Weight: 73 kg

DRUGS (4)
  1. ULTRAVIST 370 [Suspect]
     Indication: COMPUTERISED TOMOGRAM ABDOMEN
     Route: 042
     Dates: start: 20080205, end: 20080205
  2. READI-CAT 2 [Concomitant]
     Indication: COMPUTERISED TOMOGRAM ABDOMEN
     Route: 048
     Dates: start: 20080201, end: 20080201
  3. THYROID TAB [Concomitant]
  4. FLUOXETINE [Concomitant]

REACTIONS (1)
  - PRURITUS [None]
